FAERS Safety Report 7410739-1 (Version None)
Quarter: 2011Q2

REPORT INFORMATION
  Report Type: 
  Country: None (occurrence: None)
  Receive Date: 20110413
  Receipt Date: 20110406
  Transmission Date: 20111010
  Serious: Yes (Hospitalization)
  Sender: FDA-Public Use
  Company Number: US-BRISTOL-MYERS SQUIBB COMPANY-15233729

PATIENT
  Age: 6 Decade
  Sex: Female

DRUGS (9)
  1. PROCARDIA [Concomitant]
  2. ONGLYZA [Suspect]
     Indication: DIABETES MELLITUS
     Dates: start: 20100401, end: 20100729
  3. HYDROCHLOROTHIAZIDE [Suspect]
  4. CARAFATE [Concomitant]
  5. IMURAN [Suspect]
  6. PRILOSEC [Concomitant]
  7. AMBIEN [Concomitant]
  8. LISINOPRIL [Concomitant]
  9. NASONEX [Concomitant]

REACTIONS (3)
  - PANCREATITIS [None]
  - RENAL FAILURE ACUTE [None]
  - DEHYDRATION [None]
